FAERS Safety Report 9929856 (Version 1)
Quarter: 2014Q1

REPORT INFORMATION
  Report Type: Report from Study
  Country: None (occurrence: US)
  Receive Date: 20140227
  Receipt Date: 20140227
  Transmission Date: 20141002
  Serious: No
  Sender: FDA-Public Use
  Company Number: US-ABBVIE-12P-163-0986194-00

PATIENT
  Sex: Male
  Weight: 61.29 kg

DRUGS (7)
  1. HUMIRA (ABBOTT) [Suspect]
     Indication: CROHN^S DISEASE
     Dates: start: 2007
  2. HUMIRA (ABBOTT) [Suspect]
     Dosage: 120 MILLIGRAM
     Dates: start: 20120920
  3. PREDNISONE [Concomitant]
     Indication: PRODUCT USED FOR UNKNOWN INDICATION
  4. CIPRO (NON-ABBOTT) [Concomitant]
     Indication: PRODUCT USED FOR UNKNOWN INDICATION
  5. METRONIDAZOLE (NON-ABBOTT) [Concomitant]
     Indication: PRODUCT USED FOR UNKNOWN INDICATION
  6. OXYCODONE (NON-ABBOTT) [Concomitant]
     Indication: PRODUCT USED FOR UNKNOWN INDICATION
  7. OXYCONTIN [Concomitant]
     Indication: PRODUCT USED FOR UNKNOWN INDICATION

REACTIONS (3)
  - Treatment failure [Unknown]
  - Therapy change [Unknown]
  - Condition aggravated [Unknown]
